FAERS Safety Report 4956288-1 (Version None)
Quarter: 2006Q1

REPORT INFORMATION
  Report Type: 
  Country: None (occurrence: None)
  Receive Date: 20060323
  Receipt Date: 20060309
  Transmission Date: 20060701
  Serious: Yes (Hospitalization)
  Sender: FDA-Public Use
  Company Number: JP200603001643

PATIENT
  Age: 72 Year
  Sex: Female

DRUGS (1)
  1. EVISTA [Suspect]
     Indication: OSTEOPOROSIS

REACTIONS (3)
  - GENITAL HAEMORRHAGE [None]
  - KNEE OPERATION [None]
  - UTERINE CANCER [None]
